FAERS Safety Report 5258538-3 (Version None)
Quarter: 2007Q1

REPORT INFORMATION
  Report Type: 
  Country: None (occurrence: None)
  Receive Date: 20070308
  Receipt Date: 20070302
  Transmission Date: 20070707
  Serious: Yes (Death, Other)
  Sender: FDA-Public Use
  Company Number: US-BRISTOL-MYERS SQUIBB COMPANY-13697420

PATIENT
  Age: 66 Year
  Sex: Female

DRUGS (18)
  1. CISPLATIN [Suspect]
     Indication: TONSIL CANCER
  2. CISPLATIN [Suspect]
     Indication: LARYNGEAL CANCER
  3. CYCLOPHOSPHAMIDE [Suspect]
     Indication: TONSIL CANCER
  4. CYCLOPHOSPHAMIDE [Suspect]
     Indication: LARYNGEAL CANCER
  5. METHOTREXATE [Suspect]
     Indication: TONSIL CANCER
  6. METHOTREXATE [Suspect]
     Indication: LARYNGEAL CANCER
  7. BLEOMYCIN [Suspect]
     Indication: TONSIL CANCER
  8. BLEOMYCIN [Suspect]
     Indication: LARYNGEAL CANCER
  9. VINCRISTINE SULFATE [Suspect]
     Indication: TONSIL CANCER
  10. VINCRISTINE SULFATE [Suspect]
     Indication: LARYNGEAL CANCER
  11. FLUOROURACIL [Suspect]
     Indication: TONSIL CANCER
  12. FLUOROURACIL [Suspect]
     Indication: LARYNGEAL CANCER
  13. ADRIAMYCIN PFS [Suspect]
     Indication: TONSIL CANCER
  14. ADRIAMYCIN PFS [Suspect]
     Indication: LARYNGEAL CANCER
  15. PLATINUM URACIL BLUE [Suspect]
     Indication: TONSIL CANCER
  16. PLATINUM URACIL BLUE [Suspect]
     Indication: LARYNGEAL CANCER
  17. RADIOTHERAPY [Concomitant]
     Indication: TONSIL CANCER
  18. RADIOTHERAPY [Concomitant]
     Indication: LARYNGEAL CANCER

REACTIONS (2)
  - CREATININE RENAL CLEARANCE DECREASED [None]
  - MALIGNANT NEOPLASM PROGRESSION [None]
